FAERS Safety Report 7792882-0 (Version None)
Quarter: 2011Q4

REPORT INFORMATION
  Report Type: 
  Country: None (occurrence: None)
  Receive Date: 20111003
  Receipt Date: 20110921
  Transmission Date: 20120403
  Serious: Yes (Hospitalization, Disabling)
  Sender: FDA-Public Use
  Company Number: US-BAYER-2011-001028

PATIENT
  Age: 30 Year
  Sex: Female
  Weight: 90.703 kg

DRUGS (7)
  1. DARVOCET [Concomitant]
     Route: 048
  2. ZITHROMAX [Concomitant]
     Dosage: 250 MG, UNK
     Route: 048
  3. BACTRIM DS [Concomitant]
     Route: 048
  4. YASMIN [Suspect]
     Indication: ACNE
     Dosage: UNK
     Dates: start: 20060920, end: 20061214
  5. PREDNISONE [Concomitant]
  6. ALBUTEROL [Concomitant]
     Dosage: UNK
  7. IBUPROFEN [Concomitant]
     Dosage: 400 MG, UNK
     Route: 048

REACTIONS (26)
  - DISORIENTATION [None]
  - HYPOAESTHESIA [None]
  - DIZZINESS [None]
  - VIITH NERVE PARALYSIS [None]
  - EAR PAIN [None]
  - ANXIETY [None]
  - SINUSITIS [None]
  - TOOTHACHE [None]
  - DISTURBANCE IN ATTENTION [None]
  - CEREBRAL INFARCTION [None]
  - OEDEMA PERIPHERAL [None]
  - MEMORY IMPAIRMENT [None]
  - HEARING IMPAIRED [None]
  - ACTIVITIES OF DAILY LIVING IMPAIRED [None]
  - IMPAIRED WORK ABILITY [None]
  - DYSSTASIA [None]
  - DYSARTHRIA [None]
  - FATIGUE [None]
  - INJURY [None]
  - PAIN [None]
  - HEADACHE [None]
  - PARAESTHESIA [None]
  - TREMOR [None]
  - PAIN IN EXTREMITY [None]
  - EMOTIONAL DISTRESS [None]
  - PANIC ATTACK [None]
